FAERS Safety Report 6144860-5 (Version None)
Quarter: 2009Q2

REPORT INFORMATION
  Report Type: 
  Country: None (occurrence: None)
  Receive Date: 20090402
  Receipt Date: 20090105
  Transmission Date: 20091009
  Serious: No
  Sender: FDA-Public Use
  Company Number: 1000004669

PATIENT
  Age: 53 Year
  Sex: Female
  Weight: 90.72 kg

DRUGS (9)
  1. BYSTOLIC [Suspect]
     Indication: HYPERTENSION
     Dosage: ORAL
     Route: 048
     Dates: start: 20080709, end: 20080712
  2. SINGULAIR [Concomitant]
  3. PULMICORT [Concomitant]
  4. POTASSIUM CHLORIDE [Concomitant]
  5. ALLEGRA [Concomitant]
  6. LASIX [Concomitant]
  7. LEXAPRO (ESCITALOPRAM OXALATE) (ESCITALOPRAM OXALATE) [Concomitant]
  8. CARDURA [Concomitant]
  9. DILTIAZEM [Concomitant]

REACTIONS (1)
  - OEDEMA PERIPHERAL [None]
